FAERS Safety Report 23778219 (Version 1)
Quarter: 2024Q2

REPORT INFORMATION
  Report Type: Spontaneous
  Country: US (occurrence: US)
  Receive Date: 20240424
  Receipt Date: 20240424
  Transmission Date: 20240716
  Serious: Yes (Hospitalization, Congenital Anomaly, Other)
  Sender: FDA-Public Use
  Company Number: US-PFIZER INC-PV202400052537

PATIENT
  Sex: Male

DRUGS (5)
  1. AZITHROMYCIN [Suspect]
     Active Substance: AZITHROMYCIN
     Dosage: UNK
     Route: 064
  2. MEDROL [Suspect]
     Active Substance: METHYLPREDNISOLONE
     Dosage: UNK
     Route: 064
  3. PHENERGAN [Suspect]
     Active Substance: PROMETHAZINE HYDROCHLORIDE
     Dosage: UNK
     Route: 064
  4. TOPAMAX [Suspect]
     Active Substance: TOPIRAMATE
     Dosage: UNK
     Route: 064
     Dates: start: 20080110, end: 20081008
  5. TYLENOL [Suspect]
     Active Substance: ACETAMINOPHEN
     Dosage: UNK
     Route: 064

REACTIONS (11)
  - Maternal exposure during pregnancy [Unknown]
  - Spina bifida [Unknown]
  - Placental transfusion syndrome [Unknown]
  - Chordee [Unknown]
  - Obstruction gastric [Recovering/Resolving]
  - Hypospadias [Recovering/Resolving]
  - Patent ductus arteriosus [Recovering/Resolving]
  - Penile torsion [Unknown]
  - Phimosis [Unknown]
  - Congenital skin dimples [Unknown]
  - Small for dates baby [Unknown]

NARRATIVE: CASE EVENT DATE: 20090101
